FAERS Safety Report 6174007-0 (Version None)
Quarter: 2009Q2

REPORT INFORMATION
  Report Type: 
  Country: None (occurrence: None)
  Receive Date: 20090430
  Receipt Date: 20090219
  Transmission Date: 20091009
  Serious: No
  Sender: FDA-Public Use
  Company Number: US-ASTRAZENECA-2007UW20662

PATIENT
  Age: 69 Year
  Sex: Female
  Weight: 65.8 kg

DRUGS (3)
  1. NEXIUM [Suspect]
     Indication: HYPERCHLORHYDRIA
     Route: 048
  2. ATENOLOL [Concomitant]
  3. XANAX [Concomitant]

REACTIONS (4)
  - BURNING SENSATION [None]
  - DRUG INEFFECTIVE [None]
  - DRY MOUTH [None]
  - PAIN IN EXTREMITY [None]
